FAERS Safety Report 7968796-X (Version None)
Quarter: 2011Q4

REPORT INFORMATION
  Report Type: 
  Country: None (occurrence: None)
  Receive Date: 20111209
  Receipt Date: 20111206
  Transmission Date: 20120403
  Serious: Yes (Other)
  Sender: FDA-Public Use
  Company Number: US-BAYER-2011-100858

PATIENT
  Age: 61 Year
  Sex: Female
  Weight: 104.3 kg

DRUGS (1)
  1. GADAVIST [Suspect]
     Indication: NUCLEAR MAGNETIC RESONANCE IMAGING
     Dosage: 10 ML, UNK

REACTIONS (6)
  - ERYTHEMA [None]
  - THROAT IRRITATION [None]
  - ANAPHYLACTIC REACTION [None]
  - THROAT TIGHTNESS [None]
  - DYSPNOEA [None]
  - CHEST DISCOMFORT [None]
